FAERS Safety Report 7217236-7 (Version None)
Quarter: 2010Q4

REPORT INFORMATION
  Report Type: 
  Country: None (occurrence: None)
  Receive Date: 20101230
  Receipt Date: 20101214
  Transmission Date: 20110411
  Serious: Yes (Other)
  Sender: FDA-Public Use
  Company Number: 2010005657

PATIENT
  Age: 48 Year
  Sex: Male

DRUGS (15)
  1. ERLOTINIB (ERLOTINIB) (TABLET) (ERLOTINIB) [Suspect]
     Indication: PANCREATIC CARCINOMA METASTATIC
     Dosage: (100 MG/M2), ORAL
     Route: 048
     Dates: start: 20100708
  2. GEMCITABINE [Suspect]
     Indication: ADENOCARCINOMA PANCREAS
     Dosage: (1000 MG/M2), ORAL
     Route: 048
     Dates: start: 20100708
  3. PANITUMUMAB [Suspect]
     Indication: PANCREATIC CARCINOMA METASTATIC
     Dosage: (4 MG/KG)
     Dates: start: 20100708
  4. M.V.I. [Concomitant]
  5. ATIVAN [Concomitant]
  6. CLINDAMYCIN [Concomitant]
  7. COMPAZINE [Concomitant]
  8. CREON [Concomitant]
  9. DOXYCYCLINE [Concomitant]
  10. HYDROCORTONE [Concomitant]
  11. LOVENOX [Concomitant]
  12. MARINOL [Concomitant]
  13. ACETAMINOPHEN [Concomitant]
  14. VITAMIN D [Concomitant]
  15. ZANTAC [Concomitant]

REACTIONS (1)
  - TINNITUS [None]
